FAERS Safety Report 10286028 (Version 2)
Quarter: 2014Q3

REPORT INFORMATION
  Report Type: Spontaneous
  Country: JP (occurrence: JP)
  Receive Date: 20140709
  Receipt Date: 20140728
  Transmission Date: 20150326
  Serious: Yes (Other)
  Sender: FDA-Public Use
  Company Number: JP-009507513-1407JPN002795

PATIENT
  Age: 51 Year
  Sex: Female

DRUGS (2)
  1. BONALON [Suspect]
     Active Substance: ALENDRONATE SODIUM
     Indication: OSTEOPOROSIS
     Dosage: 35 MG WEEKLY (DIVIDED DOSE FREQUENCY UNKNOWN)
     Route: 048
  2. PREDONINE [Concomitant]
     Active Substance: PREDNISOLONE\PREDNISOLONE ACETATE\PREDNISOLONE SODIUM SUCCINATE
     Indication: RHEUMATOID ARTHRITIS
     Dosage: 5 MG, DAILY (DIVIDED DOSE FREQUENCY UNKNOWN, FORMULATION:POR)
     Route: 048

REACTIONS (2)
  - Osteosynthesis [Recovered/Resolved]
  - Femur fracture [Recovered/Resolved]
